FAERS Safety Report 10550450 (Version 1)
Quarter: 2014Q4

REPORT INFORMATION
  Report Type: Spontaneous
  Country: US (occurrence: US)
  Receive Date: 20141029
  Receipt Date: 20141029
  Transmission Date: 20150529
  Serious: No
  Sender: FDA-Public Use
  Company Number: US-TEVA-466732USA

PATIENT
  Sex: Female
  Weight: 99.88 kg

DRUGS (2)
  1. IMITREX [Concomitant]
     Active Substance: SUMATRIPTAN\SUMATRIPTAN SUCCINATE
     Indication: MIGRAINE
     Dosage: UP TO QID
     Route: 048
  2. PROVIGIL [Suspect]
     Active Substance: MODAFINIL
     Indication: NARCOLEPSY

REACTIONS (6)
  - Asthenia [Not Recovered/Not Resolved]
  - Quality of life decreased [Not Recovered/Not Resolved]
  - Sleep paralysis [Not Recovered/Not Resolved]
  - Weight increased [Unknown]
  - Somnolence [Unknown]
  - Memory impairment [Unknown]
